FAERS Safety Report 11857610 (Version 1)
Quarter: 2015Q4

REPORT INFORMATION
  Report Type: Spontaneous
  Country: US (occurrence: None)
  Receive Date: 20151221
  Receipt Date: 20151221
  Transmission Date: 20160305
  Serious: Yes (Hospitalization)
  Sender: FDA-Public Use
  Company Number: None

PATIENT
  Age: 80 Year
  Sex: Male
  Weight: 75.5 kg

DRUGS (1)
  1. RIVAROXABAN [Suspect]
     Active Substance: RIVAROXABAN
     Indication: ATRIAL FIBRILLATION
     Route: 048
     Dates: start: 20151208

REACTIONS (4)
  - Large intestine polyp [None]
  - Diverticulitis [None]
  - Gastrointestinal arteriovenous malformation [None]
  - Gastric haemorrhage [None]

NARRATIVE: CASE EVENT DATE: 20151208
